FAERS Safety Report 4790555-X (Version None)
Quarter: 2005Q4

REPORT INFORMATION
  Report Type: 
  Country: None (occurrence: None)
  Receive Date: 20051005
  Receipt Date: 20050926
  Transmission Date: 20060501
  Serious: Yes (Other)
  Sender: FDA-Public Use
  Company Number: 2005130459

PATIENT
  Age: 73 Year
  Sex: Male
  Weight: 72.5755 kg

DRUGS (10)
  1. NORVASC [Suspect]
     Indication: HYPERTENSION
     Dosage: SEE IMAGE
     Dates: start: 20000321
  2. NORVASC [Suspect]
     Indication: HYPERTENSION
     Dosage: SEE IMAGE
     Dates: start: 20000401
  3. NORVASC [Suspect]
     Indication: HYPERTENSION
     Dosage: SEE IMAGE
     Dates: start: 20000501
  4. LIPITOR [Suspect]
     Indication: BLOOD CHOLESTEROL INCREASED
     Dosage: 10 MG (10 MG, DAILY - EVERYDAY)
     Dates: start: 20020304
  5. ATACAND [Concomitant]
  6. METOPROLOL TARTRATE [Concomitant]
  7. INSULIN [Concomitant]
  8. FOSAMAX [Concomitant]
  9. LUPRON [Concomitant]
  10. SYNTHROID [Concomitant]

REACTIONS (9)
  - ABNORMAL FAECES [None]
  - BLOOD CHOLESTEROL INCREASED [None]
  - DIARRHOEA [None]
  - DISORIENTATION [None]
  - DIZZINESS [None]
  - DRY EYE [None]
  - MACULAR DEGENERATION [None]
  - MOVEMENT DISORDER [None]
  - PARKINSON'S DISEASE [None]
